FAERS Safety Report 8965353 (Version 1)
Quarter: 2012Q4

REPORT INFORMATION
  Report Type: 
  Country: GB (occurrence: GB)
  Receive Date: 20121213
  Receipt Date: 20121213
  Transmission Date: 20130627
  Serious: Yes (Hospitalization)
  Sender: FDA-Public Use
  Company Number: GB-BRISTOL-MYERS SQUIBB COMPANY-17048182

PATIENT
  Age: 50 Year
  Sex: Female

DRUGS (1)
  1. ABILIFY TABS [Suspect]
     Route: 048
     Dates: start: 201205, end: 201206

REACTIONS (8)
  - Headache [Recovered/Resolved]
  - Hypoaesthesia [Recovered/Resolved]
  - Abdominal pain upper [Recovered/Resolved]
  - Dizziness [Recovered/Resolved]
  - Overdose [Unknown]
  - Irritability [Recovered/Resolved]
  - Insomnia [Recovered/Resolved]
  - Epistaxis [Recovered/Resolved]
